FAERS Safety Report 24836940 (Version 1)
Quarter: 2025Q1

REPORT INFORMATION
  Report Type: Report from Study
  Country: GB (occurrence: GB)
  Receive Date: 20250113
  Receipt Date: 20250113
  Transmission Date: 20250408
  Serious: Yes (Other)
  Sender: GILEAD
  Company Number: GB-GILEAD-2025-0699565

PATIENT
  Sex: Female

DRUGS (2)
  1. SOFOSBUVIR\VELPATASVIR [Suspect]
     Active Substance: SOFOSBUVIR\VELPATASVIR
     Indication: Hepatitis C
     Dosage: 400MG/100MG
     Route: 048
     Dates: start: 20241228
  2. VITAMIN D NOS [Concomitant]
     Active Substance: CHOLECALCIFEROL\ERGOCALCIFEROL

REACTIONS (8)
  - Hip fracture [Unknown]
  - Blindness unilateral [Unknown]
  - Headache [Not Recovered/Not Resolved]
  - Eye disorder [Unknown]
  - Fall [Unknown]
  - Bone pain [Unknown]
  - Illness [Unknown]
  - Product dose omission issue [Recovered/Resolved]
